FAERS Safety Report 9016892 (Version 1)
Quarter: 2013Q1

REPORT INFORMATION
  Report Type: Spontaneous
  Country: US (occurrence: None)
  Receive Date: 20130116
  Receipt Date: 20130116
  Transmission Date: 20140127
  Serious: No
  Sender: FDA-Public Use
  Company Number: US-HORIZON-DUE-0013-2012

PATIENT
  Age: 70 Year
  Sex: Male
  Weight: 102 kg

DRUGS (6)
  1. DUEXIS [Suspect]
     Indication: BACK PAIN
     Dosage: 1 DF?RE-STARTED  1AUG2012
     Dates: start: 20120908
  2. GABAPENTIN AUROBINDO [Suspect]
     Dosage: INCREASED TO 200 MG, SINCE
     Dates: start: 20120801
  3. HYDROCHLOROTHIAZIDE [Suspect]
     Indication: BLOOD PRESSURE
  4. ATENOLOL [Concomitant]
  5. BENICAR [Concomitant]
  6. XANAX [Concomitant]

REACTIONS (2)
  - Oedema peripheral [None]
  - Drug interaction [None]
